FAERS Safety Report 5885641-7 (Version None)
Quarter: 2008Q3

REPORT INFORMATION
  Report Type: 
  Country: None (occurrence: None)
  Receive Date: 20080912
  Receipt Date: 20080901
  Transmission Date: 20090109
  Serious: Yes (Other)
  Sender: FDA-Public Use
  Company Number: GXKR2008BR08304

PATIENT
  Age: 73 Year
  Sex: Female

DRUGS (5)
  1. ZOLPIDEM [Suspect]
     Dosage: 10 MG, ONCE/SINGLE
  2. QUETIAPINE FUMARATE [Concomitant]
  3. RIVASTIGMINE TARTRATE [Concomitant]
  4. SPIRONOLACTONE [Concomitant]
  5. FUROSEMIDE [Concomitant]

REACTIONS (14)
  - ASCITES [None]
  - CRYPTOGENIC CIRRHOSIS [None]
  - DISORIENTATION [None]
  - DYSKINESIA [None]
  - GLASGOW COMA SCALE ABNORMAL [None]
  - HEPATIC ENCEPHALOPATHY [None]
  - HEPATIC FAILURE [None]
  - HEPATIC NEOPLASM MALIGNANT [None]
  - JOINT SWELLING [None]
  - LIVER DISORDER [None]
  - LUNG NEOPLASM [None]
  - PORTAL HYPERTENSIVE GASTROPATHY [None]
  - SOPOR [None]
  - VARICES OESOPHAGEAL [None]
